FAERS Safety Report 5717087-6 (Version None)
Quarter: 2008Q2

REPORT INFORMATION
  Report Type: 
  Country: None (occurrence: None)
  Receive Date: 20080424
  Receipt Date: 20080414
  Transmission Date: 20081010
  Serious: Yes (Death, Other)
  Sender: FDA-Public Use
  Company Number: US-PFIZER INC-2008018480

PATIENT
  Sex: Female

DRUGS (3)
  1. CELEBREX [Suspect]
     Indication: ARTHRITIS
  2. CELEBREX [Suspect]
     Indication: ARTHRALGIA
  3. BEXTRA [Suspect]
     Indication: ARTHRITIS
     Route: 048
     Dates: start: 20040827, end: 20041105

REACTIONS (1)
  - MYOCARDIAL INFARCTION [None]
